FAERS Safety Report 24152220 (Version 2)
Quarter: 2024Q3

REPORT INFORMATION
  Report Type: Spontaneous
  Country: IT (occurrence: IT)
  Receive Date: 20240730
  Receipt Date: 20240802
  Transmission Date: 20241017
  Serious: Yes (Other)
  Sender: GILEAD
  Company Number: None

PATIENT
  Age: 48 Year
  Sex: Female
  Weight: 65 kg

DRUGS (5)
  1. YESCARTA [Suspect]
     Active Substance: AXICABTAGENE CILOLEUCEL
     Indication: Diffuse large B-cell lymphoma
     Route: 042
     Dates: start: 20200904
  2. ETOPOSIDE [Concomitant]
     Active Substance: ETOPOSIDE
     Dosage: 2.3 G
  3. METHOTREXATE [Concomitant]
     Active Substance: METHOTREXATE
     Dosage: 8 G/M
  4. CYCLOPHOSPHAMIDE [Concomitant]
     Active Substance: CYCLOPHOSPHAMIDE
     Dosage: 4  G/M2
  5. TAMOXIFEN [Concomitant]
     Active Substance: TAMOXIFEN

REACTIONS (1)
  - Myelodysplastic syndrome [Not Recovered/Not Resolved]

NARRATIVE: CASE EVENT DATE: 20211115
